FAERS Safety Report 25517430 (Version 1)
Quarter: 2025Q3

REPORT INFORMATION
  Report Type: Spontaneous
  Country: US (occurrence: US)
  Receive Date: 20250704
  Receipt Date: 20250704
  Transmission Date: 20251020
  Serious: No
  Sender: EMD SERONO INC
  Company Number: US-Merck Healthcare KGaA-2025033498

PATIENT
  Sex: Female

DRUGS (4)
  1. MAVENCLAD [Suspect]
     Active Substance: CLADRIBINE
     Indication: Multiple sclerosis
  2. MAVENCLAD [Suspect]
     Active Substance: CLADRIBINE
  3. MAVENCLAD [Suspect]
     Active Substance: CLADRIBINE
     Dates: start: 20210924, end: 20210928
  4. MAVENCLAD [Suspect]
     Active Substance: CLADRIBINE

REACTIONS (9)
  - Weight decreased [Unknown]
  - Speech disorder [Unknown]
  - Dysphagia [Unknown]
  - Cognitive disorder [Unknown]
  - Spinal disorder [Unknown]
  - Gait disturbance [Unknown]
  - Movement disorder [Unknown]
  - Seasonal allergy [Unknown]
  - Meniscus injury [Unknown]
